FAERS Safety Report 8780299 (Version 1)
Quarter: 2012Q4

REPORT INFORMATION
  Report Type: Spontaneous
  Country: US (occurrence: None)
  Receive Date: 20120905
  Receipt Date: 20120905
  Transmission Date: 20130627
  Serious: Yes (Life-Threatening)
  Sender: FDA-Public Use
  Company Number: None

PATIENT
  Sex: Female
  Weight: 53.8 kg

DRUGS (1)
  1. RIFAMPICIN [Suspect]
     Dates: start: 20111110, end: 20120416

REACTIONS (3)
  - Crying [None]
  - Nervousness [None]
  - Suicidal ideation [None]
